FAERS Safety Report 18307609 (Version 4)
Quarter: 2021Q1

REPORT INFORMATION
  Report Type: Report from Study
  Country: BR (occurrence: BR)
  Receive Date: 20200924
  Receipt Date: 20210201
  Transmission Date: 20210419
  Serious: Yes (Other)
  Sender: FDA-Public Use
  Company Number: BR-UCBSA-2020036941

PATIENT
  Sex: Female
  Weight: 49 kg

DRUGS (11)
  1. DEXANEURIN [Suspect]
     Active Substance: DEXAMETHASONE\LIDOCAINE\VITAMINS
     Indication: PAIN
  2. GABAPENTINA [Concomitant]
     Active Substance: GABAPENTIN
     Indication: PRODUCT USED FOR UNKNOWN INDICATION
  3. ENDOFOLIN [Concomitant]
     Active Substance: FOLIC ACID
     Indication: PRODUCT USED FOR UNKNOWN INDICATION
  4. OMEPRAZOLE [OMEPRAZOLE SODIUM] [Concomitant]
     Active Substance: OMEPRAZOLE SODIUM
     Indication: PRODUCT USED FOR UNKNOWN INDICATION
  5. PURAN [Concomitant]
     Active Substance: LEVOTHYROXINE SODIUM
     Indication: HYPOTHYROIDISM
     Dosage: UNK UNK, ONCE DAILY (QD)
     Route: 048
  6. PRELONE [Concomitant]
     Active Substance: PREDNISOLONE
     Indication: PRODUCT USED FOR UNKNOWN INDICATION
  7. CERTOLIZUMAB PEGOL RA [Suspect]
     Active Substance: CERTOLIZUMAB PEGOL
     Indication: RHEUMATOID ARTHRITIS
     Dosage: 200 MILLIGRAM, EV 15 DAYS
     Route: 058
     Dates: start: 20200819, end: 2020
  8. XARELTO [Concomitant]
     Active Substance: RIVAROXABAN
     Indication: THROMBOSIS
     Dosage: 20 MILLIGRAM, ONCE DAILY (QD)
     Route: 048
  9. CEFALEXINA [CEFALEXIN] [Concomitant]
     Indication: COVID-19
     Route: 030
  10. AZITROMICINA [Concomitant]
     Active Substance: AZITHROMYCIN DIHYDRATE
     Indication: COVID-19
     Dosage: 500 MILLIGRAM, ONCE DAILY (QD)
     Route: 048
  11. METOTREXATO [METHOTREXATE] [Concomitant]
     Active Substance: METHOTREXATE
     Indication: PRODUCT USED FOR UNKNOWN INDICATION

REACTIONS (13)
  - Anaemia [Unknown]
  - Lung disorder [Unknown]
  - Weight increased [Recovering/Resolving]
  - Peripheral venous disease [Unknown]
  - Pneumonia [Recovering/Resolving]
  - Swelling [Recovering/Resolving]
  - Thrombosis [Recovering/Resolving]
  - SARS-CoV-2 test positive [Unknown]
  - Gait disturbance [Recovering/Resolving]
  - Weight decreased [Unknown]
  - Sluggishness [Recovering/Resolving]
  - Adverse drug reaction [Recovering/Resolving]
  - COVID-19 [Recovered/Resolved with Sequelae]

NARRATIVE: CASE EVENT DATE: 2020
